FAERS Safety Report 24061692 (Version 1)
Quarter: 2024Q3

REPORT INFORMATION
  Report Type: Report from Study
  Country: AT (occurrence: AT)
  Receive Date: 20240708
  Receipt Date: 20240708
  Transmission Date: 20241017
  Serious: Yes (Hospitalization)
  Sender: MYLAN
  Company Number: AT-TAKEDA-AT201832156

PATIENT
  Sex: Female

DRUGS (4)
  1. IBUPROFEN [Suspect]
     Active Substance: IBUPROFEN
     Indication: Product used for unknown indication
     Dosage: 600 MILLIGRAM, Q12H
     Route: 065
  2. IBUPROFEN [Suspect]
     Active Substance: IBUPROFEN
     Dosage: 600 MILLIGRAM, Q6HR
     Route: 065
  3. REPLAGAL [Suspect]
     Active Substance: AGALSIDASE ALFA
     Indication: Fabry^s disease
     Dosage: 14 MILLILITER, Q2WEEKS
     Route: 042
  4. REPLAGAL [Suspect]
     Active Substance: AGALSIDASE ALFA
     Dosage: 10.5 MILLIGRAM, BIWEEKLY
     Route: 042

REACTIONS (7)
  - Oral pain [Recovered/Resolved]
  - Respiratory syncytial virus infection [Recovered/Resolved]
  - Fabry^s disease [Not Recovered/Not Resolved]
  - Arthropod bite [Recovering/Resolving]
  - Blood pressure decreased [Recovered/Resolved]
  - Pain [Recovered/Resolved]
  - Inappropriate schedule of product administration [Recovered/Resolved]

NARRATIVE: CASE EVENT DATE: 20180810
